FAERS Safety Report 4368047-1 (Version None)
Quarter: 2004Q2

REPORT INFORMATION
  Report Type: 
  Country: None (occurrence: None)
  Receive Date: 20040527
  Receipt Date: 20040405
  Transmission Date: 20050107
  Serious: No
  Sender: FDA-Public Use
  Company Number: 205716

PATIENT
  Age: 60 Year
  Sex: Male
  Weight: 110.7 kg

DRUGS (5)
  1. RAPTIVA [Suspect]
     Indication: PSORIASIS
     Dosage: 110 MG 1 / WEEK, SUBCUTANEOUS
     Route: 058
     Dates: start: 20040311, end: 20040405
  2. LIPITOR [Concomitant]
  3. ZYRTEC [Concomitant]
  4. NEXIUM (ESOMEPRAZOLE MAGNESIUM) UNK TO UNK [Concomitant]
  5. ZIAC (BISOPROLOL FUMARATAE, HYDROCHLOROTHIAZIDE) UNK TO UNK [Concomitant]

REACTIONS (1)
  - WHITE BLOOD CELL COUNT INCREASED [None]
